FAERS Safety Report 26195665 (Version 1)
Quarter: 2025Q4

REPORT INFORMATION
  Report Type: Spontaneous
  Country: EU (occurrence: EU)
  Receive Date: 20251224
  Receipt Date: 20251224
  Transmission Date: 20260118
  Serious: Yes (Other)
  Sender: AUROBINDO
  Company Number: EU-AFSSAPS-MP2025001626

PATIENT
  Age: 2 Year
  Sex: Female

DRUGS (2)
  1. FINASTERIDE [Suspect]
     Active Substance: FINASTERIDE
     Indication: Androgenetic alopecia
     Dosage: 1.2 MILLIGRAM, ONCE A DAY
     Dates: start: 20211106, end: 20240806
  2. MINOXIDIL [Suspect]
     Active Substance: MINOXIDIL
     Indication: Diffuse alopecia
     Dosage: 2.5 MILLIGRAM, ONCE A DAY
     Dates: start: 20211106, end: 20240806

REACTIONS (2)
  - Hair growth abnormal [Not Recovered/Not Resolved]
  - Paternal exposure during pregnancy [Recovered/Resolved]

NARRATIVE: CASE EVENT DATE: 20221229
